FAERS Safety Report 9942135 (Version 1)
Quarter: 2014Q1

REPORT INFORMATION
  Report Type: Report from Study
  Country: US (occurrence: US)
  Receive Date: 20140303
  Receipt Date: 20140303
  Transmission Date: 20141002
  Serious: No
  Sender: FDA-Public Use
  Company Number: US-ABBVIE-13P-163-1043807-00

PATIENT
  Sex: Female

DRUGS (2)
  1. HUMIRA [Suspect]
     Indication: COLITIS ULCERATIVE
     Dosage: 4 PENS, DAY 1
     Route: 058
     Dates: start: 20121231, end: 20121231
  2. HUMIRA [Suspect]
     Dosage: 2 PENS, DAY 15

REACTIONS (1)
  - Injection site pain [Unknown]
